FAERS Safety Report 11777261 (Version 2)
Quarter: 2015Q4

REPORT INFORMATION
  Report Type: Spontaneous
  Country: US (occurrence: US)
  Receive Date: 20151125
  Receipt Date: 20151126
  Transmission Date: 20160304
  Serious: No
  Sender: FDA-Public Use
  Company Number: US-PFIZER INC-2015408628

PATIENT
  Age: 45 Year
  Sex: Male
  Weight: 86.64 kg

DRUGS (1)
  1. ADVIL [Suspect]
     Active Substance: IBUPROFEN
     Indication: PAIN
     Dosage: 1 DF, 1X/DAY

REACTIONS (2)
  - Expired product administered [Unknown]
  - Weight increased [Unknown]

NARRATIVE: CASE EVENT DATE: 2015
